FAERS Safety Report 16475506 (Version 1)
Quarter: 2019Q2

REPORT INFORMATION
  Report Type: Report from Study
  Country: US (occurrence: US)
  Receive Date: 20190625
  Receipt Date: 20190625
  Transmission Date: 20190711
  Serious: Yes (Death)
  Sender: FDA-Public Use
  Company Number: US-ARIAD PHARMACEUTICALS, INC-2017US007897

PATIENT
  Age: 84 Year
  Sex: Male
  Weight: 57 kg

DRUGS (1)
  1. PONATINIB [Suspect]
     Active Substance: PONATINIB
     Indication: CHRONIC MYELOID LEUKAEMIA
     Dosage: 30 MG, QD
     Route: 048
     Dates: start: 20170220

REACTIONS (3)
  - Blood urine present [Unknown]
  - Product dose omission [Unknown]
  - Death [Fatal]

NARRATIVE: CASE EVENT DATE: 20190615
